FAERS Safety Report 7945800-6 (Version None)
Quarter: 2011Q4

REPORT INFORMATION
  Report Type: 
  Country: None (occurrence: None)
  Receive Date: 20111129
  Receipt Date: 20111118
  Transmission Date: 20120403
  Serious: Yes (Other)
  Sender: FDA-Public Use
  Company Number: GB-TEVA-308609ISR

PATIENT
  Age: 74 Year
  Sex: Male
  Weight: 111 kg

DRUGS (6)
  1. BISOPROLOL FUMARATE [Concomitant]
     Dosage: 10 MILLIGRAM;
  2. LOSARTAN POTASSIUM [Concomitant]
     Dosage: 100 MILLIGRAM;
  3. SIMVASTATIN [Concomitant]
     Dosage: 40 MILLIGRAM;
  4. LANSOPRAZOLE [Concomitant]
     Dosage: 15 MILLIGRAM;
  5. WARFARIN SODIUM [Suspect]
  6. HYDROMOL CREAM [Interacting]
     Indication: DRY SKIN
     Dosage: 2.5% W/W
     Dates: start: 20110915

REACTIONS (2)
  - INTERNATIONAL NORMALISED RATIO INCREASED [None]
  - DRUG INTERACTION [None]
